FAERS Safety Report 4959757-3 (Version None)
Quarter: 2006Q1

REPORT INFORMATION
  Report Type: 
  Country: None (occurrence: None)
  Receive Date: 20060324
  Receipt Date: 20060312
  Transmission Date: 20060701
  Serious: Yes (Other)
  Sender: FDA-Public Use
  Company Number: 2006034994

PATIENT
  Sex: Male
  Weight: 95.2554 kg

DRUGS (9)
  1. NEURONTIN [Suspect]
     Indication: POST HERPETIC NEURALGIA
  2. VIAGRA [Suspect]
     Indication: ERECTILE DYSFUNCTION
     Dosage: ORAL
     Route: 048
     Dates: start: 20040101
  3. ATENOLOL [Suspect]
     Indication: HYPERTENSION
     Dosage: ORAL
     Route: 048
  4. NORTRIPTYLINE (NORTRIPTYLINE) [Suspect]
     Indication: POST HERPETIC NEURALGIA
  5. ULTRAM [Suspect]
     Indication: POST HERPETIC NEURALGIA
  6. VALIUM [Suspect]
     Indication: PAIN
  7. VICODIN [Concomitant]
  8. ALCOHOL (ETHANOL) [Concomitant]
  9. ALL OTHER THERAPEUTIC PRODUCTS (ALL OTHER THERAPEUTIC PRODUCTS) [Concomitant]

REACTIONS (8)
  - BLOOD PRESSURE INCREASED [None]
  - DRUG INEFFECTIVE [None]
  - ERECTILE DYSFUNCTION [None]
  - ERECTION INCREASED [None]
  - ERYTHROPSIA [None]
  - POST HERPETIC NEURALGIA [None]
  - SKIN DISCOLOURATION [None]
  - STRESS [None]
